FAERS Safety Report 8372974-8 (Version None)
Quarter: 2012Q2

REPORT INFORMATION
  Report Type: 
  Country: None (occurrence: None)
  Receive Date: 20120521
  Receipt Date: 20120214
  Transmission Date: 20120825
  Serious: No
  Sender: FDA-Public Use
  Company Number: US-ASTRAZENECA-2012SE13143

PATIENT
  Age: 82 Year
  Sex: Female

DRUGS (12)
  1. COLCRYS [Concomitant]
  2. NISODIPEN [Concomitant]
     Dosage: UNKNOWN
  3. PREDNISONE [Concomitant]
  4. GABAPENTIN [Concomitant]
  5. HYDRALAZINE HCL [Concomitant]
  6. ALLOPURINOL [Concomitant]
  7. METOPROLOL TARTRATE [Concomitant]
  8. SIMVASTATIN [Concomitant]
  9. PRILOSEC OTC [Suspect]
     Route: 048
  10. SYNTHROID [Concomitant]
     Dosage: UNKNOWN
  11. FUROSEMIDE [Concomitant]
     Dosage: UNKNOWN
  12. LEVOTHYROXINE SODIUM [Concomitant]
     Dosage: UNKNOWN

REACTIONS (5)
  - DIARRHOEA [None]
  - INCORRECT DOSE ADMINISTERED [None]
  - PRURITUS [None]
  - INAPPROPRIATE SCHEDULE OF DRUG ADMINISTRATION [None]
  - INCORRECT DRUG ADMINISTRATION DURATION [None]
